FAERS Safety Report 9990786 (Version 1)
Quarter: 2014Q1

REPORT INFORMATION
  Report Type: Report from Study
  Country: US (occurrence: US)
  Receive Date: 20140310
  Receipt Date: 20140310
  Transmission Date: 20141002
  Serious: No
  Sender: FDA-Public Use
  Company Number: US-ABBVIE-13P-163-1135355-00

PATIENT
  Age: 55 Year
  Sex: Female
  Weight: 78.54 kg

DRUGS (14)
  1. HUMIRA [Suspect]
     Indication: RHEUMATOID ARTHRITIS
     Dates: end: 20130618
  2. OXYGEN [Concomitant]
     Indication: CHRONIC OBSTRUCTIVE PULMONARY DISEASE
     Dosage: 4 TO 5 LITERS
  3. FOLIC ACID [Concomitant]
     Indication: PRODUCT USED FOR UNKNOWN INDICATION
  4. DILTIAZEM [Concomitant]
     Indication: HYPERTENSION
  5. OMEPRAZOLE [Concomitant]
     Indication: PRODUCT USED FOR UNKNOWN INDICATION
  6. LEVOTHYROXINE [Concomitant]
     Indication: HYPOTHYROIDISM
  7. TIZANIDINE [Concomitant]
     Indication: MUSCLE RELAXANT THERAPY
  8. VENLAFAXINE [Concomitant]
     Indication: DEPRESSION
  9. AMYTRIPTYLINE [Concomitant]
     Indication: INSOMNIA
  10. VALPROIC ACID [Concomitant]
     Indication: MIGRAINE
  11. CENTRUM SILVER ADULTS 50+ [Concomitant]
     Indication: PRODUCT USED FOR UNKNOWN INDICATION
  12. OSCAL [Concomitant]
     Indication: PRODUCT USED FOR UNKNOWN INDICATION
  13. METHOTREXATE [Concomitant]
     Indication: RHEUMATOID ARTHRITIS
  14. OXYCODONE [Concomitant]
     Indication: PAIN

REACTIONS (2)
  - Wrist fracture [Recovering/Resolving]
  - Fall [Recovered/Resolved]
